FAERS Safety Report 11193444 (Version 1)
Quarter: 2015Q2

REPORT INFORMATION
  Report Type: Spontaneous
  Country: AR (occurrence: AR)
  Receive Date: 20150616
  Receipt Date: 20150616
  Transmission Date: 20150821
  Serious: Yes (Other)
  Sender: FDA-Public Use
  Company Number: AR-BAYER-2015-009485

PATIENT
  Age: 31 Year
  Sex: Female

DRUGS (1)
  1. ASPIRINETAS [Suspect]
     Active Substance: ASPIRIN
     Indication: ANTICOAGULANT THERAPY
     Dosage: 100 MG PER DAY
     Route: 048
     Dates: start: 20150120, end: 20150422

REACTIONS (5)
  - Preterm premature rupture of membranes [None]
  - Hypertension [None]
  - Maternal exposure during pregnancy [None]
  - Premature labour [None]
  - Product use issue [None]

NARRATIVE: CASE EVENT DATE: 20150120
